FAERS Safety Report 12832457 (Version 1)
Quarter: 2016Q4

REPORT INFORMATION
  Report Type: Spontaneous
  Country: GB (occurrence: GB)
  Receive Date: 20161010
  Receipt Date: 20161010
  Transmission Date: 20170207
  Serious: Yes (Other)
  Sender: FDA-Public Use
  Company Number: GB-LUPIN PHARMACEUTICALS INC.-2016-04571

PATIENT
  Sex: Female

DRUGS (3)
  1. QUETIAPINE 25MG FILM-COATED TABLETS [Suspect]
     Active Substance: QUETIAPINE
     Dosage: THREE IN THE MORNING AND THREE IN THE EVENING
     Route: 048
  2. QUETIAPINE 25MG FILM-COATED TABLETS [Suspect]
     Active Substance: QUETIAPINE
     Indication: BIPOLAR DISORDER
     Dosage: ONE AT NIGHT, THEN ONE IN THE MORNING AND ONE IN THE EVENING
     Route: 048
  3. QUETIAPINE 25MG FILM-COATED TABLETS [Suspect]
     Active Substance: QUETIAPINE
     Dosage: TWO IN THE MORNING AND TWO IN THE EVENING
     Route: 048

REACTIONS (4)
  - Seizure [Unknown]
  - Muscle twitching [Unknown]
  - Feeling drunk [Unknown]
  - Feeling abnormal [Unknown]
